FAERS Safety Report 18942493 (Version 7)
Quarter: 2021Q3

REPORT INFORMATION
  Report Type: Report from Study
  Country: None (occurrence: IL)
  Receive Date: 20210225
  Receipt Date: 20210823
  Transmission Date: 20211014
  Serious: Yes (Hospitalization, Disabling)
  Sender: FDA-Public Use
  Company Number: IL-ABBVIE-21P-082-3755303-00

PATIENT
  Age: 71 Year
  Sex: Male
  Weight: 68 kg

DRUGS (11)
  1. AZACITIDINE. [Suspect]
     Active Substance: AZACITIDINE
     Dosage: 7 DAYS WITHIN THE FIRST 9 CALENDAR DAYS OF EACH 28 DAY CYCLE
     Route: 042
     Dates: start: 20210214, end: 20210215
  2. VENETOCLAX. [Suspect]
     Active Substance: VENETOCLAX
     Dosage: 14 DAY ON, 14 DAYS OFF
     Route: 048
     Dates: start: 20210314
  3. AZACITIDINE. [Suspect]
     Active Substance: AZACITIDINE
     Indication: MYELODYSPLASTIC SYNDROME
     Dosage: 7 DAYS WITHIN THE FIRST 9 CALENDAR DAYS OF EACH 28 DAY CYCLE
     Route: 042
     Dates: start: 20210110, end: 20210118
  4. AZACITIDINE. [Suspect]
     Active Substance: AZACITIDINE
     Dosage: 7 DAYS WITHIN THE FIRST 9 CALENDAR DAYS OF EACH 28 DAY CYCLE
     Route: 042
     Dates: start: 20210314
  5. CIPRALEX [Concomitant]
     Active Substance: ESCITALOPRAM OXALATE
     Indication: DEPRESSION
  6. DUODART [Concomitant]
     Active Substance: DUTASTERIDE\TAMSULOSIN
     Indication: DYSURIA
     Route: 048
     Dates: start: 2018
  7. NOCTURNO [Concomitant]
     Indication: INSOMNIA
     Route: 048
     Dates: start: 20210211, end: 20210214
  8. VENETOCLAX. [Suspect]
     Active Substance: VENETOCLAX
     Indication: MYELODYSPLASTIC SYNDROME
     Dosage: 14 DAY ON, 14 DAYS OFF
     Route: 048
     Dates: start: 20210110, end: 20210216
  9. ENSURE PLUS ADVANCE [Concomitant]
     Indication: NUTRITIONAL SUPPLEMENTATION
     Route: 048
     Dates: start: 20210202, end: 20210214
  10. PREDNISONE. [Concomitant]
     Active Substance: PREDNISONE
     Indication: MYELODYSPLASTIC SYNDROME
     Route: 048
     Dates: start: 202008, end: 20210131
  11. CIPRALEX [Concomitant]
     Active Substance: ESCITALOPRAM OXALATE
     Indication: ANXIETY
     Route: 048
     Dates: start: 20210211, end: 20210217

REACTIONS (4)
  - Cellulitis orbital [Recovered/Resolved]
  - Infection [Recovered/Resolved]
  - Fungal tracheitis [Recovered/Resolved]
  - Neutrophil count decreased [Recovered/Resolved]

NARRATIVE: CASE EVENT DATE: 20210128
